FAERS Safety Report 17208344 (Version 2)
Quarter: 2020Q2

REPORT INFORMATION
  Report Type: Spontaneous
  Country: US (occurrence: US)
  Receive Date: 20191227
  Receipt Date: 20200527
  Transmission Date: 20200713
  Serious: No
  Sender: FDA-Public Use
  Company Number: US-UCBSA-2018050453

PATIENT
  Sex: Female

DRUGS (1)
  1. CIMZIA [Suspect]
     Active Substance: CERTOLIZUMAB PEGOL
     Indication: RHEUMATOID ARTHRITIS
     Dosage: UNK, EV 2 WEEKS(QOW)
     Route: 058
     Dates: start: 20180801, end: 20180901

REACTIONS (1)
  - Rash [Unknown]

NARRATIVE: CASE EVENT DATE: 2018
